FAERS Safety Report 5305026-1 (Version None)
Quarter: 2007Q2

REPORT INFORMATION
  Report Type: 
  Country: None (occurrence: None)
  Receive Date: 20070417
  Receipt Date: 20070406
  Transmission Date: 20071010
  Serious: Yes (Other)
  Sender: FDA-Public Use
  Company Number: 2007BI007753

PATIENT
  Age: 28 Year
  Sex: Female

DRUGS (1)
  1. AVONEX [Suspect]
     Indication: MULTIPLE SCLEROSIS
     Dosage: 30 UG;QW; IM
     Route: 030
     Dates: start: 20041001, end: 20060401

REACTIONS (4)
  - CONTUSION [None]
  - DRUG EXPOSURE DURING PREGNANCY [None]
  - FALL [None]
  - PREMATURE LABOUR [None]
